FAERS Safety Report 16408135 (Version 1)
Quarter: 2019Q2

REPORT INFORMATION
  Report Type: Report from Study
  Country: GB (occurrence: GB)
  Receive Date: 20190610
  Receipt Date: 20190610
  Transmission Date: 20190711
  Serious: Yes (Hospitalization, Other)
  Sender: FDA-Public Use
  Company Number: GB-ROCHE-2040768

PATIENT
  Sex: Female

DRUGS (2)
  1. METHOTREXATE. [Concomitant]
     Active Substance: METHOTREXATE
  2. ROACTEMRA [Suspect]
     Active Substance: TOCILIZUMAB
     Indication: RHEUMATOID ARTHRITIS
     Route: 058
     Dates: start: 20160727

REACTIONS (12)
  - Fall [Unknown]
  - Condition aggravated [Unknown]
  - Infection [Unknown]
  - Sepsis [Unknown]
  - Ear infection [Recovering/Resolving]
  - Nasopharyngitis [Recovering/Resolving]
  - Blister [Unknown]
  - Cellulitis [Unknown]
  - Pain in extremity [Unknown]
  - Malaise [Unknown]
  - Urinary tract infection [Unknown]
  - Immunodeficiency [Unknown]
